FAERS Safety Report 6820006-2 (Version None)
Quarter: 2010Q2

REPORT INFORMATION
  Report Type: 
  Country: None (occurrence: None)
  Receive Date: 20100630
  Receipt Date: 20100618
  Transmission Date: 20101027
  Serious: Yes (Death, Hospitalization, Other)
  Sender: FDA-Public Use
  Company Number: PERC20100078

PATIENT
  Age: 46 Year
  Sex: Male

DRUGS (9)
  1. PERCOCET [Suspect]
     Indication: DRUG USE FOR UNKNOWN INDICATION
     Dates: start: 20060419
  2. ACTIQ [Suspect]
     Indication: DRUG USE FOR UNKNOWN INDICATION
     Dosage: BU
     Route: 002
  3. LORTAB [Suspect]
     Indication: INTERVERTEBRAL DISC DEGENERATION
     Dates: start: 20030314
  4. LORTAB [Suspect]
     Indication: PAIN
     Dates: start: 20030314
  5. METHADONE HCL [Suspect]
     Indication: DRUG USE FOR UNKNOWN INDICATION
     Dates: start: 20100419
  6. SOMA [Suspect]
     Indication: INTERVERTEBRAL DISC DEGENERATION
     Dates: start: 20030314
  7. SOMA [Suspect]
     Indication: PAIN
     Dates: start: 20030314
  8. VALIUM [Suspect]
     Indication: DRUG USE FOR UNKNOWN INDICATION
  9. MEPROBAMATE [Suspect]
     Indication: DRUG USE FOR UNKNOWN INDICATION

REACTIONS (25)
  - ACCIDENTAL DEATH [None]
  - ACCIDENTAL OVERDOSE [None]
  - ANOXIC ENCEPHALOPATHY [None]
  - ARTERIOSCLEROSIS [None]
  - ARTERIOSCLEROSIS CORONARY ARTERY [None]
  - BRAIN INJURY [None]
  - BRAIN OEDEMA [None]
  - BRONCHOPNEUMONIA [None]
  - CARDIAC ENZYMES INCREASED [None]
  - CARDIO-RESPIRATORY ARREST [None]
  - CEREBRAL ISCHAEMIA [None]
  - CORONARY ARTERY OCCLUSION [None]
  - DRUG ABUSE [None]
  - DRUG DEPENDENCE [None]
  - DRUG SCREEN POSITIVE [None]
  - DRUG TOXICITY [None]
  - GENERAL PHYSICAL HEALTH DETERIORATION [None]
  - INJURY [None]
  - LETHARGY [None]
  - MYOCARDIAL INFARCTION [None]
  - NO THERAPEUTIC RESPONSE [None]
  - RENAL FAILURE [None]
  - SNORING [None]
  - TRANSAMINASES INCREASED [None]
  - UNRESPONSIVE TO STIMULI [None]
